FAERS Safety Report 4938334-4 (Version None)
Quarter: 2006Q1

REPORT INFORMATION
  Report Type: 
  Country: None (occurrence: None)
  Receive Date: 20060308
  Receipt Date: 20060308
  Transmission Date: 20060701
  Serious: Yes (Life-Threatening, Hospitalization)
  Sender: FDA-Public Use
  Company Number: None

PATIENT
  Sex: Male
  Weight: 86.1834 kg

DRUGS (2)
  1. EXJADE [Suspect]
     Indication: HAEMOCHROMATOSIS
     Dosage: 2,750 1X DAILY
     Dates: start: 20060208, end: 20060211
  2. EXJADE [Suspect]

REACTIONS (8)
  - ACTIVITIES OF DAILY LIVING IMPAIRED [None]
  - BLOOD PRESSURE INCREASED [None]
  - COMA [None]
  - CONVULSION [None]
  - INCOHERENT [None]
  - MALAISE [None]
  - TONGUE BLISTERING [None]
  - VOMITING [None]
